FAERS Safety Report 6974722-2 (Version None)
Quarter: 2010Q3

REPORT INFORMATION
  Report Type: 
  Country: None (occurrence: None)
  Receive Date: 20100909
  Receipt Date: 20081217
  Transmission Date: 20110219
  Serious: No
  Sender: FDA-Public Use
  Company Number: US-WYE-H07035708

PATIENT
  Sex: Male

DRUGS (3)
  1. PRISTIQ [Suspect]
     Route: 048
     Dates: start: 20081001, end: 20080101
  2. PRISTIQ [Suspect]
     Route: 048
     Dates: start: 20081101
  3. DILANTIN [Concomitant]
     Indication: CONVULSION
     Dosage: UNKNOWN

REACTIONS (1)
  - RASH [None]
